FAERS Safety Report 24779631 (Version 2)
Quarter: 2024Q4

REPORT INFORMATION
  Report Type: Report from Study
  Country: FR (occurrence: FR)
  Receive Date: 20241226
  Receipt Date: 20241231
  Transmission Date: 20250114
  Serious: Yes (Hospitalization)
  Sender: ABBVIE
  Company Number: FR-ABBVIE-6065088

PATIENT
  Age: 81 Year
  Sex: Female

DRUGS (1)
  1. FOSCARBIDOPA\FOSLEVODOPA [Suspect]
     Active Substance: FOSCARBIDOPA\FOSLEVODOPA
     Indication: Product used for unknown indication
     Dosage: CONTINUOUS FLOW RATE (DURING 24H) (IN ML/H): 0.56ML/H;FLOW RATE 1 (ML/H): 0.36ML/H;DURATION (H): ...
     Route: 058
     Dates: start: 20241121

REACTIONS (2)
  - Fall [Not Recovered/Not Resolved]
  - Balance disorder [Recovered/Resolved]

NARRATIVE: CASE EVENT DATE: 20241220
